FAERS Safety Report 5394870-0 (Version None)
Quarter: 2007Q3

REPORT INFORMATION
  Report Type: 
  Country: None (occurrence: None)
  Receive Date: 20070720
  Receipt Date: 20070710
  Transmission Date: 20080115
  Serious: Yes (Hospitalization)
  Sender: FDA-Public Use
  Company Number: 2007BI000637

PATIENT
  Sex: Female

DRUGS (1)
  1. AVONEX [Suspect]
     Indication: MULTIPLE SCLEROSIS
     Dosage: 30 UG;QW; IM
     Route: 030
     Dates: start: 20040801

REACTIONS (13)
  - BACK PAIN [None]
  - BALANCE DISORDER [None]
  - CHOLECYSTITIS [None]
  - CHOLELITHIASIS [None]
  - DYSPHAGIA [None]
  - FATIGUE [None]
  - GASTRITIS [None]
  - MALAISE [None]
  - MOBILITY DECREASED [None]
  - MULTIPLE SCLEROSIS [None]
  - MUSCULAR WEAKNESS [None]
  - WEIGHT [None]
  - WEIGHT DECREASED [None]
